FAERS Safety Report 14362633 (Version 1)
Quarter: 2018Q1

REPORT INFORMATION
  Report Type: Spontaneous
  Country: US (occurrence: US)
  Receive Date: 20180105
  Receipt Date: 20180105
  Transmission Date: 20180509
  Serious: Yes (Other)
  Sender: FDA-Public Use
  Company Number: None

PATIENT
  Age: 45 Year
  Sex: Female

DRUGS (1)
  1. MODAFINIL. [Suspect]
     Active Substance: MODAFINIL
     Indication: FATIGUE
     Route: 048
     Dates: start: 20171027, end: 20171027

REACTIONS (4)
  - Nausea [None]
  - Palpitations [None]
  - Feeling jittery [None]
  - Flushing [None]

NARRATIVE: CASE EVENT DATE: 20171027
